FAERS Safety Report 25805985 (Version 1)
Quarter: 2025Q3

REPORT INFORMATION
  Report Type: Spontaneous
  Country: CN (occurrence: CN)
  Receive Date: 20250916
  Receipt Date: 20250916
  Transmission Date: 20251021
  Serious: Yes (Hospitalization, Other)
  Sender: BAXTER
  Company Number: None

PATIENT
  Age: 8 Year
  Sex: Female
  Weight: 27.5 kg

DRUGS (10)
  1. IFOSFAMIDE [Suspect]
     Active Substance: IFOSFAMIDE
     Indication: Neuroblastoma
     Dosage: 1.5 G, QD (D1, D2, D3, D4)
     Route: 041
     Dates: start: 20250818, end: 20250821
  2. IFOSFAMIDE [Suspect]
     Active Substance: IFOSFAMIDE
     Indication: Malignant mediastinal neoplasm
  3. MESNA [Suspect]
     Active Substance: MESNA
     Indication: Neuroblastoma
     Route: 065
     Dates: start: 20250818
  4. MESNA [Suspect]
     Active Substance: MESNA
     Indication: Malignant mediastinal neoplasm
  5. CARBOPLATIN [Suspect]
     Active Substance: CARBOPLATIN
     Indication: Neuroblastoma
     Dosage: 92 MG, QD (D1, D2, D3, D4)
     Route: 041
     Dates: start: 20250818, end: 20250821
  6. CARBOPLATIN [Suspect]
     Active Substance: CARBOPLATIN
     Indication: Malignant mediastinal neoplasm
  7. TENIPOSIDE [Suspect]
     Active Substance: TENIPOSIDE
     Indication: Neuroblastoma
     Dosage: 45 MG, QD (D1, D2, D3, D4)
     Route: 041
     Dates: start: 20250818, end: 20250821
  8. TENIPOSIDE [Suspect]
     Active Substance: TENIPOSIDE
     Indication: Malignant mediastinal neoplasm
  9. DINUTUXIMAB BETA [Suspect]
     Active Substance: DINUTUXIMAB BETA
     Indication: Neuroblastoma
     Dosage: 10 MG, QD (D1, D2, D3, D4, D5, D6, D7)
     Route: 041
     Dates: start: 20250818, end: 20250824
  10. DINUTUXIMAB BETA [Suspect]
     Active Substance: DINUTUXIMAB BETA
     Indication: Malignant mediastinal neoplasm

REACTIONS (1)
  - Myelosuppression [Recovering/Resolving]

NARRATIVE: CASE EVENT DATE: 20250903
